FAERS Safety Report 5906124-1 (Version None)
Quarter: 2008Q4

REPORT INFORMATION
  Report Type: 
  Country: None (occurrence: None)
  Receive Date: 20081002
  Receipt Date: 20080925
  Transmission Date: 20090506
  Serious: Yes (Other)
  Sender: FDA-Public Use
  Company Number: PHHY2008BR03015

PATIENT
  Age: 73 Year
  Sex: Female
  Weight: 70 kg

DRUGS (1)
  1. DIOVAN HCT [Suspect]
     Indication: HYPERTENSION
     Dosage: 160/12.5, QD
     Route: 048

REACTIONS (6)
  - BLOOD PRESSURE INCREASED [None]
  - NERVOUSNESS [None]
  - SURGERY [None]
  - VARICOSE VEIN [None]
  - VARICOSE VEIN RUPTURED [None]
  - WEIGHT DECREASED [None]
